FAERS Safety Report 9296086 (Version 1)
Quarter: 2013Q2

REPORT INFORMATION
  Report Type: Spontaneous
  Country: US (occurrence: US)
  Receive Date: 20130517
  Receipt Date: 20130517
  Transmission Date: 20140414
  Serious: No
  Sender: FDA-Public Use
  Company Number: US-TARO-2013P1002256

PATIENT
  Age: 72 Year
  Sex: Female

DRUGS (5)
  1. NYSTATIN + TRIAMCINOLONE ACETONIDE OINTMENT [Suspect]
     Indication: VULVOVAGINAL DISCOMFORT
     Route: 067
  2. NYSTATIN + TRIAMCINOLONE ACETONIDE OINTMENT [Suspect]
     Indication: VULVOVAGINAL DISCOMFORT
     Route: 067
     Dates: start: 20130101, end: 2013
  3. NYSTATIN + TRIAMCINOLONE ACETONIDE OINTMENT [Suspect]
     Indication: VULVOVAGINAL DISCOMFORT
     Route: 067
     Dates: start: 2013
  4. UNSPECIFIED HORMONES [Concomitant]
  5. SYNTHROID [Concomitant]

REACTIONS (2)
  - Application site irritation [Recovered/Resolved]
  - Application site pain [Recovered/Resolved]
